FAERS Safety Report 6715384-9 (Version None)
Quarter: 2010Q2

REPORT INFORMATION
  Report Type: 
  Country: None (occurrence: None)
  Receive Date: 20100507
  Receipt Date: 20100507
  Transmission Date: 20101027
  Serious: No
  Sender: FDA-Public Use
  Company Number: None

PATIENT
  Age: 6 Year
  Sex: Male
  Weight: 21.3191 kg

DRUGS (1)
  1. CHILDREN'S ZYRTEC ALLERGY [Suspect]
     Indication: MULTIPLE ALLERGIES
     Dosage: 5ML PREMEASURED SPOON ONCE PO
     Route: 048
     Dates: start: 20100320, end: 20100320

REACTIONS (3)
  - DIZZINESS [None]
  - FALL [None]
  - PRODUCT QUALITY ISSUE [None]
